FAERS Safety Report 9514940 (Version 1)
Quarter: 2013Q3

REPORT INFORMATION
  Report Type: Spontaneous
  Country: BR (occurrence: BR)
  Receive Date: 20130911
  Receipt Date: 20130911
  Transmission Date: 20140515
  Serious: Yes (Other)
  Sender: FDA-Public Use
  Company Number: BR-ASTRAZENECA-2013SE67073

PATIENT
  Age: 69 Year
  Sex: Female
  Weight: 63 kg

DRUGS (5)
  1. CRESTOR [Suspect]
     Indication: BLOOD CHOLESTEROL INCREASED
     Dosage: DAILY
     Route: 048
     Dates: end: 201209
  2. CRESTOR [Suspect]
     Indication: BLOOD TRIGLYCERIDES INCREASED
     Dosage: DAILY
     Route: 048
     Dates: end: 201209
  3. CRESTOR [Suspect]
     Indication: BLOOD CHOLESTEROL INCREASED
     Dosage: DAILY
     Route: 048
     Dates: start: 201303
  4. CRESTOR [Suspect]
     Indication: BLOOD TRIGLYCERIDES INCREASED
     Dosage: DAILY
     Route: 048
     Dates: start: 201303
  5. ASPIRIN [Suspect]
     Indication: ISCHAEMIA
     Dates: start: 201303, end: 201303

REACTIONS (3)
  - Ischaemia [Not Recovered/Not Resolved]
  - Haematochezia [Recovered/Resolved]
  - Drug dose omission [Recovered/Resolved]
